FAERS Safety Report 5667829-3 (Version None)
Quarter: 2008Q1

REPORT INFORMATION
  Report Type: 
  Country: None (occurrence: None)
  Receive Date: 20080315
  Receipt Date: 20080206
  Transmission Date: 20080703
  Serious: No
  Sender: FDA-Public Use
  Company Number: US-ABBOTT-08P-163-0437439-00

PATIENT
  Sex: Female
  Weight: 83.536 kg

DRUGS (3)
  1. HUMIRA [Suspect]
     Indication: CROHN'S DISEASE
     Route: 058
     Dates: start: 20071001
  2. VITAMIN TAB [Concomitant]
     Indication: PREGNANCY
     Route: 048
  3. MESALAMINE [Concomitant]
     Indication: CROHN'S DISEASE
     Route: 048

REACTIONS (2)
  - ACCIDENTAL EXPOSURE [None]
  - ANTEPARTUM HAEMORRHAGE [None]
